FAERS Safety Report 11488692 (Version 1)
Quarter: 2015Q3

REPORT INFORMATION
  Report Type: Spontaneous
  Country: US (occurrence: US)
  Receive Date: 20150910
  Receipt Date: 20150910
  Transmission Date: 20151125
  Serious: No
  Sender: FDA-Public Use
  Company Number: US-ROCHE-1467911

PATIENT
  Sex: Male

DRUGS (8)
  1. ATENOLOL. [Concomitant]
     Active Substance: ATENOLOL
  2. METFORMIN [Concomitant]
     Active Substance: METFORMIN HYDROCHLORIDE
  3. CLONAZEPAM. [Concomitant]
     Active Substance: CLONAZEPAM
     Route: 065
  4. LISINOPRIL. [Concomitant]
     Active Substance: LISINOPRIL
  5. PEGASYS [Suspect]
     Active Substance: PEGINTERFERON ALFA-2A
     Indication: HEPATITIS C
     Route: 058
     Dates: start: 20140906
  6. RIBASPHERE RIBAPAK [Suspect]
     Active Substance: RIBAVIRIN
     Indication: HEPATITIS C
     Route: 065
  7. SOVALDI [Suspect]
     Active Substance: SOFOSBUVIR
     Indication: HEPATITIS C
     Route: 065
  8. CLOZAPINE. [Concomitant]
     Active Substance: CLOZAPINE

REACTIONS (7)
  - Mobility decreased [Unknown]
  - Gait disturbance [Unknown]
  - Depression [Unknown]
  - Anxiety [Unknown]
  - Paranoia [Unknown]
  - Asthenia [Unknown]
  - Insomnia [Unknown]
